FAERS Safety Report 23717192 (Version 1)
Quarter: 2024Q2

REPORT INFORMATION
  Report Type: Spontaneous
  Country: US (occurrence: US)
  Receive Date: 20240408
  Receipt Date: 20240408
  Transmission Date: 20240715
  Serious: Yes (Hospitalization)
  Sender: FDA-Public Use
  Company Number: US-BRISTOL-MYERS SQUIBB COMPANY-2024-050469

PATIENT
  Age: 69 Year
  Sex: Female

DRUGS (1)
  1. LENALIDOMIDE [Suspect]
     Active Substance: LENALIDOMIDE
     Indication: Therapeutic drug monitoring
     Dosage: TAKE 1 WHOLE CAPSULE BY MOUTH WITH WATER DAILY. DO NOT BREAK CHEW OR OPEN
     Route: 048

REACTIONS (1)
  - Hospitalisation [Unknown]
